FAERS Safety Report 9885636 (Version 2)
Quarter: 2014Q3

REPORT INFORMATION
  Report Type: Spontaneous
  Country: US (occurrence: US)
  Receive Date: 20140210
  Receipt Date: 20140804
  Transmission Date: 20150326
  Serious: Yes (Hospitalization, Other)
  Sender: FDA-Public Use
  Company Number: US-009507513-1402USA004197

PATIENT
  Sex: Female

DRUGS (2)
  1. NUVARING [Suspect]
     Active Substance: ETHINYL ESTRADIOL\ETONOGESTREL
     Dosage: 0.12-0.015 MG, Q3 MONTHS
     Route: 067
     Dates: start: 20130410, end: 20130728
  2. PRILOSEC [Concomitant]
     Active Substance: OMEPRAZOLE MAGNESIUM
     Dosage: 20 MG, QD

REACTIONS (4)
  - Depression [Unknown]
  - Pulmonary embolism [Unknown]
  - Postural orthostatic tachycardia syndrome [Unknown]
  - Headache [Unknown]

NARRATIVE: CASE EVENT DATE: 201308
